FAERS Safety Report 5760081-X (Version None)
Quarter: 2008Q2

REPORT INFORMATION
  Report Type: 
  Country: None (occurrence: None)
  Receive Date: 20080605
  Receipt Date: 20080528
  Transmission Date: 20081010
  Serious: Yes (Hospitalization)
  Sender: FDA-Public Use
  Company Number: JP-SANOFI-SYNTHELABO-A01200805446

PATIENT
  Sex: Male

DRUGS (12)
  1. VOLTAREN [Concomitant]
     Dates: start: 20070927, end: 20070927
  2. 1 CONCOMITANT DRUG [Concomitant]
     Dosage: UNK
     Dates: start: 20070926
  3. KYTRIL [Concomitant]
     Dosage: UNK
     Dates: start: 20070925, end: 20070925
  4. DECADRON [Concomitant]
     Dates: start: 20070925, end: 20070925
  5. RESTAMIN [Concomitant]
     Dosage: UNK
     Dates: start: 20070925, end: 20070925
  6. VOLTAREN [Concomitant]
     Dosage: UNK
     Dates: start: 20070925, end: 20070925
  7. ISOVORIN [Suspect]
     Route: 041
  8. MAGMITT [Concomitant]
     Dates: start: 20070725
  9. FLUOROURACIL [Suspect]
     Route: 042
  10. ASPIRIN [Concomitant]
     Dates: end: 20070706
  11. ELPLAT [Suspect]
     Indication: RECTAL CANCER METASTATIC
     Route: 041
  12. AVASTIN [Suspect]
     Route: 041

REACTIONS (4)
  - NEUTROPHIL COUNT DECREASED [None]
  - RETINAL DETACHMENT [None]
  - RETINAL HAEMORRHAGE [None]
  - WHITE BLOOD CELL COUNT DECREASED [None]
